FAERS Safety Report 13683305 (Version 1)
Quarter: 2017Q2

REPORT INFORMATION
  Report Type: Report from Study
  Country: None (occurrence: BE)
  Receive Date: 20170623
  Receipt Date: 20170623
  Transmission Date: 20170830
  Serious: Yes (Death)
  Sender: FDA-Public Use
  Company Number: BE-ABBVIE-15P-013-1361081-00

PATIENT
  Age: 81 Year
  Sex: Female

DRUGS (20)
  1. DUODOPA [Suspect]
     Active Substance: CARBIDOPA\LEVODOPA
     Dosage: AM=0ML?CD=2ML/HR DURING 16HRS?ED=2.5ML?ND=1.5ML/HR DURING 8HRS
     Route: 050
     Dates: start: 20170418, end: 20170530
  2. COVERSYL [Concomitant]
     Active Substance: PERINDOPRIL
     Indication: PRODUCT USED FOR UNKNOWN INDICATION
  3. DUODOPA [Suspect]
     Active Substance: CARBIDOPA\LEVODOPA
     Dosage: AM= 0ML; CD = 2.9 ML/H  16 HRS; ND= 2.4 ML/H  8 HRS; ED= 1.5ML
     Route: 050
     Dates: start: 20160317, end: 20160615
  4. DUODOPA [Suspect]
     Active Substance: CARBIDOPA\LEVODOPA
     Dosage: AM 0ML;CD 2.6ML/H DURING 16 HRS;ND2.4 ML/H DURING 8HRS;ED1.5ML
     Route: 050
     Dates: start: 20160615, end: 20160913
  5. DUODOPA [Suspect]
     Active Substance: CARBIDOPA\LEVODOPA
     Dosage: AM= 0 ML; CD= 2.4 ML/H DURING 16 HRS; ND= 2.2 ML/H DURING 8 HRS; ED= 1.5 ML
     Route: 050
     Dates: start: 20160913, end: 20170314
  6. VESICARE [Concomitant]
     Active Substance: SOLIFENACIN SUCCINATE
     Indication: PRODUCT USED FOR UNKNOWN INDICATION
  7. SIFROL [Concomitant]
     Active Substance: PRAMIPEXOLE
     Indication: PRODUCT USED FOR UNKNOWN INDICATION
     Route: 048
  8. DUODOPA [Suspect]
     Active Substance: CARBIDOPA\LEVODOPA
     Dosage: MD=0ML?CD=2ML/HR DURING 16HRS?EDA=2,5ML?ND=1,5ML/HR DURING 8HRS
     Route: 050
     Dates: start: 20170530
  9. DUODOPA [Suspect]
     Active Substance: CARBIDOPA\LEVODOPA
     Dosage: DOSAGE CONTINUOUSLY MONITORED AND ADJUSTED
     Route: 050
     Dates: start: 20121127, end: 20150309
  10. PRAXILENE [Concomitant]
     Active Substance: NAFRONYL
     Indication: PRODUCT USED FOR UNKNOWN INDICATION
  11. ELIQUIS [Concomitant]
     Active Substance: APIXABAN
     Indication: PRODUCT USED FOR UNKNOWN INDICATION
  12. DUODOPA [Suspect]
     Active Substance: CARBIDOPA\LEVODOPA
     Dosage: AM DOSE=0ML, CD=3.1ML/H FOR 16HRS, ND=3.1ML/H FOR 8HRS AND ED=2ML
     Route: 050
     Dates: start: 20150309, end: 20150313
  13. DUODOPA [Suspect]
     Active Substance: CARBIDOPA\LEVODOPA
     Dosage: UNKNOWN DOSAGE
     Route: 050
     Dates: start: 20170403, end: 20170413
  14. DUODOPA [Suspect]
     Active Substance: CARBIDOPA\LEVODOPA
     Route: 050
     Dates: end: 20170607
  15. DUODOPA [Suspect]
     Active Substance: CARBIDOPA\LEVODOPA
     Indication: PARKINSON^S DISEASE
     Dosage: AM DOSE=6ML, CD=2.4ML/H FOR 16HRS AND ED=1.3ML
     Route: 050
     Dates: start: 20121126, end: 20121127
  16. DUODOPA [Suspect]
     Active Substance: CARBIDOPA\LEVODOPA
     Dosage: AM DOSE=0ML, CD=2.9ML/H FOR 16HRS, ND=2 ML/H FOR 8HRS AND ED=2ML
     Route: 050
     Dates: start: 20150313, end: 20160317
  17. DUODOPA [Suspect]
     Active Substance: CARBIDOPA\LEVODOPA
     Dosage: AM= 0 ML; CD= 2.1 ML/H DURING 16 HRS; ND= 1.5 ML/H DURING 8 HRS; ED= 1.5 ML
     Route: 050
     Dates: start: 20170314, end: 20170403
  18. DUODOPA [Suspect]
     Active Substance: CARBIDOPA\LEVODOPA
     Dosage: AM=0ML?CD=2.8ML/HR DURING 16HRS?ED=2ML?ND=2ML/HR DURING 8HRS
     Route: 050
     Dates: start: 20170413, end: 20170418
  19. ASAFLOW [Concomitant]
     Active Substance: ASPIRIN
     Indication: PRODUCT USED FOR UNKNOWN INDICATION
  20. OMEPRAZOL [Concomitant]
     Active Substance: OMEPRAZOLE
     Indication: PRODUCT USED FOR UNKNOWN INDICATION

REACTIONS (24)
  - Death [Fatal]
  - Dyskinesia [Unknown]
  - Genital prolapse [Unknown]
  - Bladder prolapse [Unknown]
  - On and off phenomenon [Unknown]
  - Weight decreased [Unknown]
  - Stoma site discharge [Unknown]
  - Amnesia [Unknown]
  - Fall [Unknown]
  - Device dislocation [Not Recovered/Not Resolved]
  - Tachycardia [Recovered/Resolved]
  - Cognitive disorder [Unknown]
  - Disorientation [Not Recovered/Not Resolved]
  - Agitation [Unknown]
  - Agitation [Recovered/Resolved]
  - Cardiovascular disorder [Unknown]
  - Erythema [Not Recovered/Not Resolved]
  - Hallucination [Not Recovered/Not Resolved]
  - Device connection issue [Not Recovered/Not Resolved]
  - Localised infection [Recovering/Resolving]
  - Condition aggravated [Unknown]
  - Incorrect route of drug administration [Not Recovered/Not Resolved]
  - Paraesthesia [Unknown]
  - Freezing phenomenon [Unknown]

NARRATIVE: CASE EVENT DATE: 20170530
